FAERS Safety Report 7814267-0 (Version None)
Quarter: 2011Q4

REPORT INFORMATION
  Report Type: 
  Country: None (occurrence: None)
  Receive Date: 20111012
  Receipt Date: 20110923
  Transmission Date: 20120403
  Serious: Yes (Other)
  Sender: FDA-Public Use
  Company Number: 20060199

PATIENT
  Age: 30 Year
  Sex: Female

DRUGS (4)
  1. PENTASA [Concomitant]
  2. VENOFER [Suspect]
     Indication: ANAEMIA
     Dosage: 200 MG WEEKLY X 4
     Dates: start: 20060402, end: 20060421
  3. SOLU-MEDROL [Concomitant]
  4. ASACOL [Concomitant]

REACTIONS (4)
  - INFLAMMATORY BOWEL DISEASE [None]
  - INTRA-UTERINE DEATH [None]
  - MATERNAL EXPOSURE DURING PREGNANCY [None]
  - CONDITION AGGRAVATED [None]
